FAERS Safety Report 21511255 (Version 3)
Quarter: 2022Q4

REPORT INFORMATION
  Report Type: Spontaneous
  Country: IL (occurrence: IL)
  Receive Date: 20221027
  Receipt Date: 20221108
  Transmission Date: 20230113
  Serious: Yes (Hospitalization, Disabling, Other)
  Sender: FDA-Public Use
  Company Number: IL-NOVARTISPH-NVSC2022IL193624

PATIENT
  Age: 67 Year
  Sex: Female

DRUGS (4)
  1. ADAKVEO [Suspect]
     Active Substance: CRIZANLIZUMAB-TMCA
     Indication: Glioblastoma
     Dosage: 5 MG/KG EVERY 4 WEEKS SINCE (LOADING DOSE X 2)
     Route: 042
     Dates: start: 20211027, end: 20211027
  2. ADAKVEO [Suspect]
     Active Substance: CRIZANLIZUMAB-TMCA
     Dosage: 5 MG/KG, Q4W
     Route: 042
     Dates: start: 20220731, end: 20220731
  3. ADAKVEO [Suspect]
     Active Substance: CRIZANLIZUMAB-TMCA
     Dosage: 5 MG/KG, Q4W
     Route: 042
     Dates: start: 20220919, end: 20220919
  4. LAMOTRIGINE [Suspect]
     Active Substance: LAMOTRIGINE
     Indication: Product used for unknown indication
     Dosage: UNK
     Route: 065

REACTIONS (7)
  - Hemiparesis [Recovering/Resolving]
  - Fatigue [Recovering/Resolving]
  - Thrombocytopenia [Recovered/Resolved]
  - Rash [Recovered/Resolved]
  - Hydrocephalus [Recovering/Resolving]
  - Seizure [Recovered/Resolved]
  - Drug effective for unapproved indication [Unknown]

NARRATIVE: CASE EVENT DATE: 20220630
